FAERS Safety Report 5067256-6 (Version None)
Quarter: 2006Q3

REPORT INFORMATION
  Report Type: 
  Country: None (occurrence: None)
  Receive Date: 20060727
  Receipt Date: 20060720
  Transmission Date: 20061208
  Serious: Yes (Death, Hospitalization)
  Sender: FDA-Public Use
  Company Number: 200612703GDS

PATIENT
  Age: 58 Year
  Sex: Female
  Weight: 62 kg

DRUGS (11)
  1. SORAFENIB [Suspect]
     Indication: RENAL CELL CARCINOMA STAGE UNSPECIFIED
     Dosage: 400 MG BID ORAL
     Route: 048
     Dates: start: 20060524, end: 20060627
  2. OXYNORM [Concomitant]
  3. HYDROCOROTISON [Concomitant]
  4. DEXOFEN (DEXCLORPHENIRAMINE MALEATE) [Concomitant]
  5. ALVEDON [Concomitant]
  6. PREFALGAN [Concomitant]
  7. SOLU-CORTEF [Concomitant]
  8. MORPHINE [Concomitant]
  9. STESOLID [Concomitant]
  10. FURIX [Concomitant]
  11. TIENAM [Concomitant]

REACTIONS (8)
  - DIARRHOEA [None]
  - DRY MOUTH [None]
  - FATIGUE [None]
  - MUSCULAR WEAKNESS [None]
  - PYREXIA [None]
  - SEPSIS [None]
  - SKIN REACTION [None]
  - VOMITING [None]
